FAERS Safety Report 11520245 (Version 1)
Quarter: 2015Q3

REPORT INFORMATION
  Report Type: Spontaneous
  Country: US (occurrence: US)
  Receive Date: 20150918
  Receipt Date: 20150918
  Transmission Date: 20151125
  Serious: No
  Sender: FDA-Public Use
  Company Number: US-RB-075045-15

PATIENT

DRUGS (2)
  1. MUCINEX DM MAXIMUM STRENGTH [Suspect]
     Active Substance: DEXTROMETHORPHAN HYDROBROMIDE\GUAIFENESIN
     Indication: CHRONIC OBSTRUCTIVE PULMONARY DISEASE
     Dosage: 1200MG. PRODUCT LAST USED ON 20-JAN-2015 AT 11:30 AM; TOTAL AMOUNT USED 6.,BID
     Route: 065
     Dates: start: 20150104
  2. MUCINEX MAXIMUM STRENGTH [Suspect]
     Active Substance: GUAIFENESIN
     Indication: CHRONIC OBSTRUCTIVE PULMONARY DISEASE
     Dosage: 1200MG. PRODUCT LAST USED ON 20-JAN-2015 AT 11:30 AM; TOTAL AMOUNT USED 11.,BID
     Route: 065
     Dates: start: 20150104

REACTIONS (2)
  - Incorrect drug administration duration [Unknown]
  - Product use issue [Unknown]
